FAERS Safety Report 18182981 (Version 2)
Quarter: 2020Q3

REPORT INFORMATION
  Report Type: Spontaneous
  Country: US (occurrence: US)
  Receive Date: 20200821
  Receipt Date: 20200825
  Transmission Date: 20201103
  Serious: No
  Sender: FDA-Public Use
  Company Number: US-TEVA-2020-US-1817625

PATIENT
  Age: 85 Year
  Sex: Female

DRUGS (2)
  1. CARBAMAZEPINE. [Suspect]
     Active Substance: CARBAMAZEPINE
     Indication: TRIGEMINAL NEURALGIA
     Dosage: 4 TABLETS A DAY UNTIL 2016 OR 2017/STARTED 11 TO 12 YEARS AGO
     Route: 065
  2. CARBAMAZEPINE. [Suspect]
     Active Substance: CARBAMAZEPINE
     Indication: PAIN
     Dosage: 3 TABLETS A DAY
     Route: 065

REACTIONS (5)
  - Product quality issue [Unknown]
  - Oral mucosal scab [Unknown]
  - Oral disorder [Unknown]
  - Oral pain [Unknown]
  - Drug ineffective [Unknown]

NARRATIVE: CASE EVENT DATE: 202007
